FAERS Safety Report 15376856 (Version 1)
Quarter: 2018Q3

REPORT INFORMATION
  Report Type: Report from Study
  Country: CN (occurrence: CN)
  Receive Date: 20180913
  Receipt Date: 20180913
  Transmission Date: 20181010
  Serious: Yes (Other)
  Sender: FDA-Public Use
  Company Number: CN-ROCHE-2182957

PATIENT

DRUGS (5)
  1. CAPECITABINE. [Suspect]
     Active Substance: CAPECITABINE
     Indication: GASTRIC CANCER
     Dosage: DAY1?DAY14, THE PROCEDURE WAS REPEATEDLY PERFORMED EVERY 21 DAYS
     Route: 048
  2. OXALIPLATIN. [Suspect]
     Active Substance: OXALIPLATIN
     Indication: GASTRIC CANCER
     Route: 050
  3. LEUCOVORIN. [Suspect]
     Active Substance: LEUCOVORIN
     Indication: GASTRIC CANCER
     Dosage: DAY 1?DAY 2
     Route: 050
  4. 5?FLUOROURACIL [Suspect]
     Active Substance: FLUOROURACIL
     Indication: GASTRIC CANCER
     Route: 065
  5. DOCETAXEL. [Suspect]
     Active Substance: DOCETAXEL
     Indication: GASTRIC CANCER
     Route: 065

REACTIONS (15)
  - Gastrointestinal disorder [Unknown]
  - Arrhythmia [Unknown]
  - Skin reaction [Unknown]
  - Thrombocytopenia [Unknown]
  - Alopecia [Unknown]
  - Liver injury [Unknown]
  - Asthenia [Unknown]
  - Anaemia [Unknown]
  - Renal impairment [Unknown]
  - Mucosal toxicity [Unknown]
  - Leukopenia [Unknown]
  - Granulocytopenia [Unknown]
  - Neurotoxicity [Unknown]
  - Nausea [Unknown]
  - Vomiting [Unknown]
